FAERS Safety Report 10149331 (Version 1)
Quarter: 2014Q2

REPORT INFORMATION
  Report Type: Spontaneous
  Country: FR (occurrence: FR)
  Receive Date: 20140502
  Receipt Date: 20140502
  Transmission Date: 20141212
  Serious: Yes (Hospitalization)
  Sender: FDA-Public Use
  Company Number: FR-EISAI INC-E3810-07069-SPO-FR

PATIENT
  Age: 95 Year
  Sex: Female

DRUGS (6)
  1. PARIET [Suspect]
     Indication: PRODUCT USED FOR UNKNOWN INDICATION
     Route: 048
     Dates: end: 20140125
  2. FUROSEMIDE [Suspect]
     Indication: PRODUCT USED FOR UNKNOWN INDICATION
     Route: 048
  3. TARDYFERON [Concomitant]
  4. TAHOR [Concomitant]
  5. DIFFU K [Concomitant]
  6. COUMADINE [Concomitant]

REACTIONS (3)
  - Hyponatraemia [Recovered/Resolved]
  - Somnolence [Recovered/Resolved]
  - Hyperglycaemia [Unknown]
